FAERS Safety Report 10072044 (Version 1)
Quarter: 2014Q2

REPORT INFORMATION
  Report Type: Spontaneous
  Country: US (occurrence: US)
  Receive Date: 20140411
  Receipt Date: 20140411
  Transmission Date: 20141212
  Serious: Yes (Death)
  Sender: FDA-Public Use
  Company Number: US-ASTRAZENECA-2014SE25196

PATIENT
  Age: 47 Year
  Sex: Female

DRUGS (4)
  1. BRILINTA [Suspect]
     Indication: ACUTE MYOCARDIAL INFARCTION
     Route: 048
     Dates: start: 20140404
  2. HEPARIN [Concomitant]
  3. ASPIRIN [Concomitant]
  4. OTHER MEDICATIONS [Concomitant]

REACTIONS (4)
  - Renal failure [Fatal]
  - Malaise [Fatal]
  - Cardiogenic shock [Fatal]
  - Adverse event [Fatal]
